FAERS Safety Report 8456039-2 (Version None)
Quarter: 2012Q2

REPORT INFORMATION
  Report Type: 
  Country: None (occurrence: None)
  Receive Date: 20120621
  Receipt Date: 20120608
  Transmission Date: 20120825
  Serious: Yes (Other)
  Sender: FDA-Public Use
  Company Number: PHHY2012IT050825

PATIENT
  Age: 38 Year
  Sex: Male

DRUGS (1)
  1. EXTAVIA [Suspect]

REACTIONS (1)
  - PSORIASIS [None]
